FAERS Safety Report 6589407-4 (Version None)
Quarter: 2010Q1

REPORT INFORMATION
  Report Type: 
  Country: None (occurrence: None)
  Receive Date: 20100205
  Receipt Date: 20100127
  Transmission Date: 20100710
  Serious: Yes (Other)
  Sender: FDA-Public Use
  Company Number: 230015J10IRL

PATIENT
  Age: 33 Year
  Sex: Male

DRUGS (1)
  1. REBIF [Suspect]
     Dosage: 22 MCG
     Dates: start: 19991101

REACTIONS (2)
  - DIPLEGIA [None]
  - GASTROENTERITIS [None]
